FAERS Safety Report 19366074 (Version 1)
Quarter: 2021Q2

REPORT INFORMATION
  Report Type: Report from Study
  Country: US (occurrence: US)
  Receive Date: 20210602
  Receipt Date: 20210602
  Transmission Date: 20210717
  Serious: No
  Sender: FDA-Public Use
  Company Number: US-DOVA PHARMACEUTICALS INC.-DOV-000925

PATIENT
  Sex: Male

DRUGS (2)
  1. DOPTELET [Suspect]
     Active Substance: AVATROMBOPAG MALEATE
     Indication: IMMUNE THROMBOCYTOPENIA
     Dosage: 40 MILLIGRAM, 3 TIMES A WEEK AND 20MG THE OTHER 4 DAYS
     Route: 048
     Dates: start: 202010
  2. DOPTELET [Suspect]
     Active Substance: AVATROMBOPAG MALEATE
     Indication: IMMUNODEFICIENCY COMMON VARIABLE

REACTIONS (1)
  - Weight decreased [Unknown]
